FAERS Safety Report 9664133 (Version 1)
Quarter: 2013Q4

REPORT INFORMATION
  Report Type: Spontaneous
  Country: US (occurrence: None)
  Receive Date: 20131030
  Receipt Date: 20131030
  Transmission Date: 20140711
  Serious: Yes (Other)
  Sender: FDA-Public Use
  Company Number: None

PATIENT
  Age: 40 Year
  Sex: Female
  Weight: 76.66 kg

DRUGS (1)
  1. RIZATRIP TAN [Suspect]
     Indication: MIGRAINE
     Dates: start: 20130215

REACTIONS (2)
  - Drug ineffective [None]
  - Migraine [None]
